FAERS Safety Report 8460585-5 (Version None)
Quarter: 2012Q2

REPORT INFORMATION
  Report Type: 
  Country: None (occurrence: None)
  Receive Date: 20120622
  Receipt Date: 20120420
  Transmission Date: 20120825
  Serious: No
  Sender: FDA-Public Use
  Company Number: US-ASTRAZENECA-2012SE26064

PATIENT
  Sex: Female

DRUGS (3)
  1. BRILINTA [Suspect]
     Route: 048
     Dates: start: 20120401
  2. UNSPECIFIED [Concomitant]
  3. PLAVIX [Concomitant]
     Dates: start: 20120401

REACTIONS (3)
  - RASH [None]
  - CONTUSION [None]
  - URTICARIA [None]
